FAERS Safety Report 7204739-4 (Version None)
Quarter: 2010Q4

REPORT INFORMATION
  Report Type: 
  Country: None (occurrence: None)
  Receive Date: 20101230
  Receipt Date: 20101220
  Transmission Date: 20110411
  Serious: Yes (Other)
  Sender: FDA-Public Use
  Company Number: KR-WATSON-2010-16504

PATIENT
  Age: 52 Year
  Sex: Male

DRUGS (1)
  1. METRONIDAZOLE [Suspect]
     Indication: BRAIN ABSCESS
     Dosage: 2 G, DAILY

REACTIONS (5)
  - CRANIAL NERVE PALSIES MULTIPLE [None]
  - DYSPHAGIA [None]
  - ENCEPHALOPATHY [None]
  - HEMIPARESIS [None]
  - NYSTAGMUS [None]
